APPROVED DRUG PRODUCT: MEGESTROL ACETATE
Active Ingredient: MEGESTROL ACETATE
Strength: 40MG/ML
Dosage Form/Route: SUSPENSION;ORAL
Application: A203960 | Product #001
Applicant: HIKMA PHARMACEUTICALS USA INC
Approved: Jun 9, 2017 | RLD: No | RS: No | Type: DISCN